FAERS Safety Report 15391004 (Version 1)
Quarter: 2018Q4

REPORT INFORMATION
  Report Type: Spontaneous
  Country: FR (occurrence: FR)
  Receive Date: 20180917
  Receipt Date: 20180917
  Transmission Date: 20190204
  Serious: Yes (Hospitalization)
  Sender: FDA-Public Use
  Company Number: FR-TEVA-2018-FR-955198

PATIENT
  Age: 49 Year
  Sex: Female
  Weight: 76 kg

DRUGS (5)
  1. ESTREVA, COMPRIM? S?CABLE [Suspect]
     Active Substance: ESTRADIOL
     Indication: UTERINE POLYP
     Dosage: 1.5 MILLIGRAM DAILY;
     Route: 048
     Dates: start: 201803, end: 201806
  2. EXACYL 0,5 G/5 ML I.V., SOLUTION INJECTABLE [Concomitant]
     Active Substance: TRANEXAMIC ACID
     Indication: METRORRHAGIA
     Route: 058
     Dates: start: 201802, end: 201806
  3. LUTENYL [Suspect]
     Active Substance: NOMEGESTROL ACETATE
     Indication: UTERINE POLYP
     Dosage: 1 DOSAGE FORMS DAILY;
     Route: 048
     Dates: start: 201803, end: 201806
  4. DOLIPRANE [Concomitant]
     Active Substance: ACETAMINOPHEN
     Route: 065
  5. BIPROFENID [Concomitant]
     Active Substance: KETOPROFEN
     Route: 065

REACTIONS (3)
  - Ischaemic stroke [Recovered/Resolved]
  - Carotid artery thrombosis [Recovered/Resolved]
  - Arteriosclerosis [Recovered/Resolved]

NARRATIVE: CASE EVENT DATE: 20180614
